FAERS Safety Report 4874887-2 (Version None)
Quarter: 2006Q1

REPORT INFORMATION
  Report Type: 
  Country: None (occurrence: None)
  Receive Date: 20060109
  Receipt Date: 20051128
  Transmission Date: 20060701
  Serious: Yes (Hospitalization, Other)
  Sender: FDA-Public Use
  Company Number: PHBS2005JP17622

PATIENT
  Age: 25 Year
  Sex: Male

DRUGS (10)
  1. RITALIN [Suspect]
     Indication: OBSESSIVE-COMPULSIVE DISORDER
     Dosage: UNK, UNK
     Route: 048
     Dates: end: 20051102
  2. RITALIN [Suspect]
     Route: 048
     Dates: start: 20051101, end: 20051101
  3. LULLAN [Concomitant]
     Route: 048
     Dates: end: 20051102
  4. ARTANE [Concomitant]
     Route: 048
     Dates: end: 20051102
  5. AMOXAN [Concomitant]
     Route: 048
     Dates: end: 20051102
  6. BETAMAC [Concomitant]
     Route: 048
     Dates: end: 20051102
  7. LEXOTAN [Concomitant]
     Route: 048
     Dates: end: 20051102
  8. ANAFRANIL [Concomitant]
     Route: 048
     Dates: end: 20051102
  9. CEREKINON [Concomitant]
     Route: 048
     Dates: end: 20051102
  10. CLOFEKTON [Concomitant]
     Route: 048
     Dates: end: 20051102

REACTIONS (3)
  - DEPRESSED LEVEL OF CONSCIOUSNESS [None]
  - DRUG ABUSER [None]
  - STATUS EPILEPTICUS [None]
